FAERS Safety Report 7581419-7 (Version None)
Quarter: 2011Q2

REPORT INFORMATION
  Report Type: 
  Country: None (occurrence: None)
  Receive Date: 20110629
  Receipt Date: 20110615
  Transmission Date: 20111010
  Serious: Yes (Hospitalization, Other)
  Sender: FDA-Public Use
  Company Number: PHHY2011DE29141

PATIENT
  Sex: Female
  Weight: 75 kg

DRUGS (5)
  1. DIOVAN [Suspect]
     Dosage: 160 MG, UNK
     Route: 048
  2. PENTAERYTHRITOL TETRANITRATE [Concomitant]
     Dosage: 160 MG, UNK
  3. ASPIRIN [Concomitant]
     Dosage: 100 MG, UNK
  4. RASILEZ [Suspect]
     Dosage: 150 MG, QD
     Route: 048
  5. GLYBURIDE [Concomitant]
     Dosage: 3.5 MG, UNK

REACTIONS (4)
  - CARDIAC FAILURE [None]
  - HYPERTENSION [None]
  - CONDITION AGGRAVATED [None]
  - ANGINA UNSTABLE [None]
